FAERS Safety Report 8440333-5 (Version None)
Quarter: 2012Q2

REPORT INFORMATION
  Report Type: 
  Country: None (occurrence: None)
  Receive Date: 20120615
  Receipt Date: 20120531
  Transmission Date: 20120825
  Serious: Yes (Hospitalization)
  Sender: FDA-Public Use
  Company Number: JP-ROCHE-642046

PATIENT
  Sex: Male
  Weight: 83.2 kg

DRUGS (13)
  1. ACTEMRA [Suspect]
     Route: 041
     Dates: start: 20081111, end: 20081111
  2. ACTEMRA [Suspect]
     Route: 041
     Dates: start: 20090522, end: 20090522
  3. ETODOLAC [Concomitant]
     Route: 048
  4. TAGAMET [Concomitant]
     Dosage: ORAL FORMULATION NOS
     Route: 048
  5. ACTEMRA [Suspect]
     Route: 041
     Dates: start: 20081212, end: 20081212
  6. URSO 250 [Concomitant]
     Dosage: ORAL FORMULATION NOS
     Route: 048
  7. ACTEMRA [Suspect]
     Route: 041
     Dates: start: 20090109, end: 20090109
  8. ACTEMRA [Suspect]
     Route: 041
     Dates: start: 20090403, end: 20090403
  9. ACTEMRA [Suspect]
     Route: 041
     Dates: start: 20090206, end: 20090206
  10. PREDNISOLONE [Concomitant]
     Route: 048
  11. ACTEMRA [Suspect]
     Indication: RHEUMATOID ARTHRITIS
     Route: 041
     Dates: start: 20081010, end: 20081010
  12. ACTEMRA [Suspect]
     Route: 041
     Dates: start: 20090306, end: 20090306
  13. AMARYL [Concomitant]
     Route: 048

REACTIONS (7)
  - ANAL ABSCESS [None]
  - SEPTIC SHOCK [None]
  - RASH GENERALISED [None]
  - CELLULITIS [None]
  - DISUSE SYNDROME [None]
  - COMPRESSION FRACTURE [None]
  - PARAPARESIS [None]
